FAERS Safety Report 6931291-0 (Version None)
Quarter: 2010Q3

REPORT INFORMATION
  Report Type: 
  Country: None (occurrence: None)
  Receive Date: 20100816
  Receipt Date: 20100806
  Transmission Date: 20110219
  Serious: Yes (Hospitalization)
  Sender: FDA-Public Use
  Company Number: 2010-2758

PATIENT
  Sex: Male

DRUGS (9)
  1. APO-GO AMPOULES (APO-GO) (APOMORPHINE HYDROCHLORIDE) (APOMORPHINE HYDR [Suspect]
     Indication: PRODUCT USED FOR UNKNOWN INDICATION
     Dosage: SUBCUTANEOUS, INCREASED FLOW-RATE
     Route: 058
  2. GLUCOPHAGE (METFORMXN) [Concomitant]
  3. ASPIRIN [Concomitant]
  4. RABEPRAZOLE SODIUM [Concomitant]
  5. GABAPENTIN [Concomitant]
  6. NOVOFORM (REPAGLINIDE) [Concomitant]
  7. PRAVASTATIN [Concomitant]
  8. STALEVO (STALEVO) [Concomitant]
  9. AZILECT (PASAGILINE) [Concomitant]

REACTIONS (1)
  - ERECTION INCREASED [None]
